FAERS Safety Report 14446409 (Version 2)
Quarter: 2018Q1

REPORT INFORMATION
  Report Type: Spontaneous
  Country: US (occurrence: US)
  Receive Date: 20180126
  Receipt Date: 20180226
  Transmission Date: 20180509
  Serious: No
  Sender: FDA-Public Use
  Company Number: US-009507513-1801USA003945

PATIENT
  Age: 65 Year
  Sex: Female

DRUGS (5)
  1. ALLEGRA [Suspect]
     Active Substance: FEXOFENADINE HYDROCHLORIDE
  2. NASACORT [Concomitant]
     Active Substance: TRIAMCINOLONE ACETONIDE
  3. CHILDRENS SUDAFED NASAL DECONGESTANT [Concomitant]
     Active Substance: PSEUDOEPHEDRINE HYDROCHLORIDE
  4. CLARINEX [Suspect]
     Active Substance: DESLORATADINE
     Indication: RHINITIS
     Dosage: 5 MG, UNK
     Route: 048
     Dates: start: 200801
  5. DESLORATADINE. [Suspect]
     Active Substance: DESLORATADINE

REACTIONS (5)
  - Adverse drug reaction [Unknown]
  - Feeling abnormal [Recovering/Resolving]
  - Wrong technique in product usage process [Unknown]
  - Headache [Unknown]
  - Nausea [Unknown]

NARRATIVE: CASE EVENT DATE: 200801
